FAERS Safety Report 5247275-7 (Version None)
Quarter: 2007Q1

REPORT INFORMATION
  Report Type: 
  Country: None (occurrence: None)
  Receive Date: 20070227
  Receipt Date: 20070212
  Transmission Date: 20070707
  Serious: Yes (Other)
  Sender: FDA-Public Use
  Company Number: PHBS2007US02692

PATIENT
  Age: 56 Year
  Sex: Male

DRUGS (5)
  1. OXCARBAZEPINE [Suspect]
     Indication: BIPOLAR II DISORDER
  2. ARIPIPRAZOLE [Suspect]
     Indication: BIPOLAR II DISORDER
     Dosage: 10 MG/DAY
  3. ATOMOXETINE [Concomitant]
  4. ESCITALOPRAM [Concomitant]
  5. QUETIAPINE FUMARATE [Concomitant]

REACTIONS (1)
  - AKATHISIA [None]
